FAERS Safety Report 13348301 (Version 2)
Quarter: 2017Q2

REPORT INFORMATION
  Report Type: Spontaneous
  Country: IE (occurrence: IE)
  Receive Date: 20170319
  Receipt Date: 20170524
  Transmission Date: 20170830
  Serious: Yes (Other)
  Sender: FDA-Public Use
  Company Number: PHFR2017IE001844

PATIENT
  Age: 42 Year
  Sex: Female

DRUGS (1)
  1. COSENTYX [Suspect]
     Active Substance: SECUKINUMAB
     Indication: PSORIASIS
     Dosage: 300 MG, QMO
     Route: 058
     Dates: start: 201608

REACTIONS (3)
  - Oral candidiasis [Recovered/Resolved]
  - Pustular psoriasis [Not Recovered/Not Resolved]
  - Vulvovaginal candidiasis [Recovered/Resolved]

NARRATIVE: CASE EVENT DATE: 201702
